FAERS Safety Report 22620250 (Version 1)
Quarter: 2023Q2

REPORT INFORMATION
  Report Type: Spontaneous
  Country: US (occurrence: None)
  Receive Date: 20230616
  Receipt Date: 20230616
  Transmission Date: 20230722
  Serious: Yes (Hospitalization)
  Sender: FDA-Public Use
  Company Number: None

PATIENT
  Sex: Female

DRUGS (1)
  1. MONOFERRIC [Suspect]
     Active Substance: FERRIC DERISOMALTOSE
     Dates: start: 20230614, end: 20230614

REACTIONS (4)
  - Chest discomfort [None]
  - Throat tightness [None]
  - Infusion related reaction [None]
  - Back pain [None]

NARRATIVE: CASE EVENT DATE: 20230614
